FAERS Safety Report 11844295 (Version 3)
Quarter: 2016Q1

REPORT INFORMATION
  Report Type: Spontaneous
  Country: JP (occurrence: JP)
  Receive Date: 20151217
  Receipt Date: 20160215
  Transmission Date: 20160526
  Serious: Yes (Death, Other)
  Sender: FDA-Public Use
  Company Number: JP-ROCHE-1679158

PATIENT
  Age: 61 Year
  Sex: Female
  Weight: 57 kg

DRUGS (8)
  1. FOLIAMIN [Concomitant]
     Active Substance: FOLIC ACID
     Indication: PROPHYLAXIS
     Route: 048
     Dates: start: 20151002, end: 20151204
  2. PREDONINE [Concomitant]
     Active Substance: PREDNISOLONE\PREDNISOLONE ACETATE\PREDNISOLONE SODIUM SUCCINATE
     Dosage: THE FRACTIONATION DOSE FREQUENCY IS UNCERTAIN.
     Route: 065
     Dates: start: 2003
  3. CELECOX [Concomitant]
     Active Substance: CELECOXIB
     Route: 048
     Dates: start: 20151002, end: 20151204
  4. RHEUMATREX [Concomitant]
     Active Substance: METHOTREXATE SODIUM
     Indication: RHEUMATOID ARTHRITIS
     Dosage: THE FRACTIONATION DOSE FREQUENCY IS UNCERTAIN.
     Route: 048
     Dates: start: 2003
  5. ACTEMRA [Suspect]
     Active Substance: TOCILIZUMAB
     Indication: RHEUMATOID ARTHRITIS
     Dosage: LAST DOSE ON 04/DEC/2015.
     Route: 041
     Dates: start: 20151009
  6. ACTONEL [Concomitant]
     Active Substance: RISEDRONATE SODIUM
     Indication: PROPHYLAXIS
     Route: 048
     Dates: start: 20151002, end: 20151204
  7. RHEUMATREX [Concomitant]
     Active Substance: METHOTREXATE SODIUM
     Route: 048
     Dates: start: 20151002, end: 20151204
  8. CELECOX [Concomitant]
     Active Substance: CELECOXIB
     Indication: RHEUMATOID ARTHRITIS
     Dosage: THE FRACTIONATION DOSE FREQUENCY IS UNCERTAIN.
     Route: 048
     Dates: start: 2003

REACTIONS (2)
  - Ruptured cerebral aneurysm [Unknown]
  - Subarachnoid haemorrhage [Fatal]

NARRATIVE: CASE EVENT DATE: 20151211
